FAERS Safety Report 7577223-6 (Version None)
Quarter: 2011Q2

REPORT INFORMATION
  Report Type: 
  Country: None (occurrence: None)
  Receive Date: 20110628
  Receipt Date: 20110124
  Transmission Date: 20111010
  Serious: Yes (Other)
  Sender: FDA-Public Use
  Company Number: US-BAYER-201033614NA

PATIENT
  Age: 35 Year
  Sex: Female
  Weight: 122.45 kg

DRUGS (8)
  1. YAZ [Suspect]
     Indication: ORAL CONTRACEPTION
     Route: 048
     Dates: start: 20030701
  2. KEFLEX [Concomitant]
  3. LOTREL [Concomitant]
  4. ALBUTEROL SULFATE AUTOHALER [Concomitant]
  5. YASMIN [Suspect]
     Indication: ORAL CONTRACEPTION
     Route: 048
     Dates: start: 20030701
  6. DROSPIRENONE AND ETHINYL ESTRADIOL [Suspect]
     Indication: ORAL CONTRACEPTION
     Route: 048
     Dates: start: 20030701
  7. MELILOTUS OFFICINALIS [Concomitant]
  8. LASIX [Concomitant]

REACTIONS (4)
  - DEEP VEIN THROMBOSIS [None]
  - PULMONARY EMBOLISM [None]
  - MOOD SWINGS [None]
  - MENTAL DISORDER [None]
